FAERS Safety Report 21799797 (Version 1)
Quarter: 2022Q4

REPORT INFORMATION
  Report Type: Spontaneous
  Country: US (occurrence: None)
  Receive Date: 20221229
  Receipt Date: 20221229
  Transmission Date: 20230113
  Serious: Yes (Life-Threatening)
  Sender: FDA-Public Use
  Company Number: None

PATIENT
  Age: 91 Year
  Sex: Male
  Weight: 83.91 kg

DRUGS (2)
  1. JARDIANCE [Suspect]
     Active Substance: EMPAGLIFLOZIN
     Indication: Respiratory disorder
     Dosage: FREQUENCY : DAILY;?
     Route: 048
     Dates: start: 20221119, end: 20221203
  2. JARDIANCE [Suspect]
     Active Substance: EMPAGLIFLOZIN
     Indication: Diabetes mellitus

REACTIONS (5)
  - Gait inability [None]
  - Asthenia [None]
  - Fall [None]
  - Hypersomnia [None]
  - Loss of consciousness [None]

NARRATIVE: CASE EVENT DATE: 20221127
